FAERS Safety Report 4464630-3 (Version None)
Quarter: 2004Q3

REPORT INFORMATION
  Report Type: 
  Country: None (occurrence: None)
  Receive Date: 20040928
  Receipt Date: 20040907
  Transmission Date: 20050211
  Serious: Yes (Other)
  Sender: FDA-Public Use
  Company Number: B0301014A

PATIENT
  Age: 60 Year
  Sex: Female

DRUGS (6)
  1. VALTREX [Suspect]
     Indication: HERPES ZOSTER
     Dosage: SEE DOSAGE TEXT/ ORAL
     Route: 048
     Dates: start: 20030523, end: 20030526
  2. THYROID TAB [Concomitant]
  3. FAMOTIDINE [Concomitant]
  4. EPINASTINE [Concomitant]
  5. LOXOPROFEN [Concomitant]
  6. ITOPRIDE HYDROCHLORIDE [Concomitant]

REACTIONS (4)
  - DIZZINESS [None]
  - GAIT DISTURBANCE [None]
  - HALLUCINATION [None]
  - SPEECH DISORDER [None]
